FAERS Safety Report 13821692 (Version 3)
Quarter: 2017Q4

REPORT INFORMATION
  Report Type: Spontaneous
  Country: US (occurrence: US)
  Receive Date: 20170801
  Receipt Date: 20171020
  Transmission Date: 20180320
  Serious: No
  Sender: FDA-Public Use
  Company Number: US-009507513-1707USA013091

PATIENT
  Age: 16 Year
  Sex: Female
  Weight: 69.84 kg

DRUGS (1)
  1. NEXPLANON [Suspect]
     Active Substance: ETONOGESTREL
     Dosage: 1 ROD 68 MG, THREE YEARS, IN LEFT ARM
     Route: 059
     Dates: start: 20170717

REACTIONS (6)
  - Device difficult to use [Unknown]
  - Product quality issue [Unknown]
  - Complication associated with device [Recovered/Resolved]
  - Complication of device insertion [Unknown]
  - No adverse event [Unknown]
  - Medication error [Unknown]

NARRATIVE: CASE EVENT DATE: 20170717
